FAERS Safety Report 23968563 (Version 1)
Quarter: 2024Q2

REPORT INFORMATION
  Report Type: Spontaneous
  Country: US (occurrence: None)
  Receive Date: 20240612
  Receipt Date: 20240612
  Transmission Date: 20240715
  Serious: Yes (Life-Threatening, Hospitalization)
  Sender: FDA-Public Use
  Company Number: None

PATIENT
  Age: 39 Year
  Sex: Male
  Weight: 92 kg

DRUGS (1)
  1. HERBALS\MUSHROOMS UNSPECIFIED [Suspect]
     Active Substance: HERBALS\MUSHROOMS UNSPECIFIED

REACTIONS (12)
  - Unresponsive to stimuli [None]
  - Seizure [None]
  - Tachycardia [None]
  - Hypertension [None]
  - Tachypnoea [None]
  - Flushing [None]
  - Hyperhidrosis [None]
  - Mydriasis [None]
  - Muscle rigidity [None]
  - Metabolic acidosis [None]
  - Hypersensitivity [None]
  - Erythema [None]

NARRATIVE: CASE EVENT DATE: 20240330
